FAERS Safety Report 4737057-4 (Version None)
Quarter: 2005Q3

REPORT INFORMATION
  Report Type: 
  Country: None (occurrence: None)
  Receive Date: 20050804
  Receipt Date: 20050727
  Transmission Date: 20060218
  Serious: Yes (Hospitalization, Other)
  Sender: FDA-Public Use
  Company Number: DEWYE865428JUL05

PATIENT
  Age: 56 Year
  Sex: Male

DRUGS (22)
  1. RAPAMUNE [Suspect]
     Indication: PROPHYLAXIS AGAINST TRANSPLANT REJECTION
     Dosage: SEE IMAGE
     Route: 048
     Dates: start: 20040829, end: 20040907
  2. RAPAMUNE [Suspect]
     Indication: PROPHYLAXIS AGAINST TRANSPLANT REJECTION
     Dosage: SEE IMAGE
     Route: 048
     Dates: start: 20040910
  3. MYCOPHENOLATE MOFETIL (MYCOPHENOLATE MOFETIL, , 0) [Suspect]
     Indication: PROPHYLAXIS AGAINST TRANSPLANT REJECTION
     Dosage: SEE IMAGE
     Route: 048
     Dates: start: 20040829, end: 20041108
  4. MYCOPHENOLATE MOFETIL (MYCOPHENOLATE MOFETIL, , 0) [Suspect]
     Indication: PROPHYLAXIS AGAINST TRANSPLANT REJECTION
     Dosage: SEE IMAGE
     Route: 048
     Dates: start: 20041115, end: 20041119
  5. MYCOPHENOLATE MOFETIL (MYCOPHENOLATE MOFETIL, , 0) [Suspect]
     Indication: PROPHYLAXIS AGAINST TRANSPLANT REJECTION
     Dosage: SEE IMAGE
     Route: 048
     Dates: start: 20041120
  6. PREDNISOLONE [Suspect]
     Indication: PROPHYLAXIS AGAINST TRANSPLANT REJECTION
     Dosage: SEE IMAGE
     Dates: start: 20040829, end: 20040829
  7. PREDNISOLONE [Suspect]
     Indication: PROPHYLAXIS AGAINST TRANSPLANT REJECTION
     Dosage: SEE IMAGE
     Dates: start: 20040830, end: 20040901
  8. PREDNISOLONE [Suspect]
     Indication: PROPHYLAXIS AGAINST TRANSPLANT REJECTION
     Dosage: SEE IMAGE
     Dates: start: 20040901
  9. ZENAPAX [Concomitant]
  10. ACTRAPHANE HM  (INSULIN HUMAN INJECTION, ISOPHANE) [Concomitant]
  11. ACTRAPID HUMAN    (INSULIN HUMAN) [Concomitant]
  12. AMPHOTERICIN B [Concomitant]
  13. CEFUROXIME [Concomitant]
  14. FLUVASTATIN (FLUVASTATIN) [Concomitant]
  15. KEPINOL  (SULFAMETHOXAZOLE/TRIMETHOPRIM) [Concomitant]
  16. MADOPAR   (BENSERAZIDE HYDROCHLORIDE, LEVODOPA) [Concomitant]
  17. METOPROLOL TARTRATE [Concomitant]
  18. PRAVASTATIN [Concomitant]
  19. RAMIPRIL [Concomitant]
  20. REPAGLINIDE        (REPAGLINIDE) [Concomitant]
  21. TORSEMIDE [Concomitant]
  22. ACETYLSALICYLIC ACID SRT [Concomitant]

REACTIONS (2)
  - INTERSTITIAL LUNG DISEASE [None]
  - VENOUS THROMBOSIS [None]
